FAERS Safety Report 10434013 (Version 1)
Quarter: 2014Q3

REPORT INFORMATION
  Report Type: Spontaneous
  Country: IT (occurrence: IT)
  Receive Date: 20140905
  Receipt Date: 20140905
  Transmission Date: 20150326
  Serious: Yes (Hospitalization, Other)
  Sender: FDA-Public Use
  Company Number: IT-TEVA-504953ISR

PATIENT
  Age: 80 Year
  Sex: Female
  Weight: 67 kg

DRUGS (10)
  1. OLANZAPINE. [Interacting]
     Active Substance: OLANZAPINE
     Indication: BIPOLAR DISORDER
     Dosage: 5 MILLIGRAM DAILY;
     Route: 048
     Dates: start: 20140401, end: 20140416
  2. JUMEX - 5 MG COMPRESSE [Concomitant]
     Indication: BIPOLAR DISORDER
     Dosage: 1 DOSAGE FORMS DAILY;
     Route: 048
     Dates: start: 20140401, end: 20140416
  3. ZOCOR - 10 MG COMPRESSE RIVESTITE CON FILM [Concomitant]
     Indication: DYSLIPIDAEMIA
     Dosage: 1 DOSAGE FORMS DAILY;
     Route: 048
  4. LARGACTIL - 25 MG COMPRESSE RIVESTITE CON FILM - TEOFARMA S.R.L. [Interacting]
     Active Substance: CHLORPROMAZINE
     Indication: BIPOLAR DISORDER
     Dosage: 1 DOSAGE FORMS DAILY;
     Route: 048
     Dates: start: 20140401, end: 20140416
  5. DEPAKIN - CHRONO 500 MG COMPRESSE A RILASCIO PROLUNGATO - SANOFI-AVENT [Interacting]
     Active Substance: VALPROIC ACID
     Indication: BIPOLAR DISORDER
     Dosage: 2 DOSAGE FORMS DAILY;
     Route: 048
     Dates: start: 20140401, end: 20140416
  6. CARDIRENE - 160 MG POLVERE PER SOLUZIONE ORALE [Concomitant]
     Indication: PRODUCT USED FOR UNKNOWN INDICATION
     Dosage: 1 DOSAGE FORMS DAILY;
     Route: 048
  7. NOVONORM - 0,5 MG COMPRESSE [Concomitant]
     Indication: DIABETES MELLITUS
     Dosage: 3 DOSAGE FORMS DAILY;
     Route: 048
  8. CARBOLITHIUM [Concomitant]
     Active Substance: LITHIUM CARBONATE
     Indication: BIPOLAR DISORDER
     Dosage: 150 MILLIGRAM DAILY;
     Route: 048
     Dates: start: 20140401, end: 20140416
  9. GABAPENTIN. [Suspect]
     Active Substance: GABAPENTIN
     Indication: BIPOLAR DISORDER
     Dosage: 800 MILLIGRAM DAILY;
     Route: 048
     Dates: start: 20140401, end: 20140416
  10. NIMODIPINE. [Concomitant]
     Active Substance: NIMODIPINE
     Indication: HYPERTENSION

REACTIONS (4)
  - Wound [None]
  - Drug interaction [Recovering/Resolving]
  - Sedation [Recovering/Resolving]
  - Head injury [Recovering/Resolving]

NARRATIVE: CASE EVENT DATE: 20140417
